FAERS Safety Report 5221086-0 (Version None)
Quarter: 2007Q1

REPORT INFORMATION
  Report Type: 
  Country: None (occurrence: None)
  Receive Date: 20070126
  Receipt Date: 20070118
  Transmission Date: 20070707
  Serious: Yes (Other)
  Sender: FDA-Public Use
  Company Number: 200616326EU

PATIENT
  Age: 58 Year
  Sex: Male

DRUGS (1)
  1. NICOTINE [Suspect]
     Route: 002
     Dates: start: 20000101, end: 20060101

REACTIONS (4)
  - BLOOD CHOLESTEROL DECREASED [None]
  - DRUG ABUSER [None]
  - INCORRECT DRUG ADMINISTRATION DURATION [None]
  - MYOCARDIAL INFARCTION [None]
